FAERS Safety Report 14900226 (Version 1)
Quarter: 2018Q2

REPORT INFORMATION
  Report Type: Report from Study
  Country: AU (occurrence: AU)
  Receive Date: 20180516
  Receipt Date: 20180516
  Transmission Date: 20180711
  Serious: Yes (Other)
  Sender: FDA-Public Use
  Company Number: PHHY2018AU007704

PATIENT
  Sex: Female

DRUGS (1)
  1. TASIGNA [Suspect]
     Active Substance: NILOTINIB
     Indication: CHRONIC MYELOID LEUKAEMIA
     Dosage: 450 MG, QD (150 MG IN MORNING AND 300MG IN EVENING)
     Route: 048
     Dates: start: 20171102

REACTIONS (3)
  - Skin cancer [Unknown]
  - Second primary malignancy [Unknown]
  - Back pain [Unknown]
